FAERS Safety Report 21349656 (Version 1)
Quarter: 2022Q3

REPORT INFORMATION
  Report Type: Spontaneous
  Country: US (occurrence: US)
  Receive Date: 20220919
  Receipt Date: 20220919
  Transmission Date: 20221027
  Serious: Yes (Hospitalization, Other)
  Sender: FDA-Public Use
  Company Number: US-PFIZER INC-PV202200058285

PATIENT
  Age: 40 Year
  Sex: Female

DRUGS (2)
  1. NARDIL [Interacting]
     Active Substance: PHENELZINE SULFATE
     Indication: Depression
     Dosage: UNK
  2. ACETAMINOPHEN\DICHLORALPHENAZONE\ISOMETHEPTENE [Interacting]
     Active Substance: ACETAMINOPHEN\DICHLORALPHENAZONE\ISOMETHEPTENE
     Indication: Headache
     Dosage: UNK

REACTIONS (9)
  - Drug interaction [Recovered/Resolved]
  - Neck pain [Recovered/Resolved]
  - Palpitations [Recovered/Resolved]
  - Headache [Recovered/Resolved]
  - Hyperhidrosis [Recovered/Resolved]
  - Ventricular tachycardia [Recovered/Resolved]
  - Ventricular extrasystoles [Recovered/Resolved]
  - Hypertensive crisis [Recovered/Resolved]
  - Blood creatine phosphokinase MB increased [Unknown]
